FAERS Safety Report 9617728 (Version 2)
Quarter: 2013Q4

REPORT INFORMATION
  Report Type: Spontaneous
  Country: FR (occurrence: None)
  Receive Date: 20131009
  Receipt Date: 20131017
  Transmission Date: 20140711
  Serious: Yes (Hospitalization)
  Sender: FDA-Public Use
  Company Number: DSM-2013-00903

PATIENT
  Age: 82 Year
  Sex: Male
  Weight: 78 kg

DRUGS (3)
  1. SEVIKAR(OLMESARTAN MEDOXOMIL, AMLODIPINE BESILATE)(TABLET)(OLMESARTAN MEDOXOMIL, AMLODIPINE BESILATE) [Suspect]
     Indication: HYPERTENSION
     Dosage: 40/10MG ( 1 IN 1 D) ORAL
     Route: 048
     Dates: start: 200905, end: 2013
  2. DIAMICRON [Concomitant]
  3. PRAVASTATIN (PRAVASTATIN) [Concomitant]

REACTIONS (7)
  - Gastroenteritis [None]
  - Weight decreased [None]
  - Renal failure acute [None]
  - Hypokalaemia [None]
  - Malabsorption [None]
  - General physical health deterioration [None]
  - Coeliac disease [None]
